FAERS Safety Report 9310758 (Version 1)
Quarter: 2013Q2

REPORT INFORMATION
  Report Type: Spontaneous
  Country: CH (occurrence: CH)
  Receive Date: 20130528
  Receipt Date: 20130528
  Transmission Date: 20140414
  Serious: Yes (Other)
  Sender: FDA-Public Use
  Company Number: CH-AMGEN-CHESP2013037064

PATIENT
  Age: 84 Year
  Sex: Male

DRUGS (3)
  1. VECTIBIX [Suspect]
     Indication: COLON CANCER
     Dosage: UNK, TBD
  2. ERBITUX [Suspect]
     Indication: COLON CANCER
     Dosage: UNK
  3. CHEMOTHERAPEUTICS [Concomitant]
     Indication: COLON CANCER
     Dosage: UNK

REACTIONS (1)
  - Vasculitis [Unknown]
